FAERS Safety Report 9452337 (Version 2)
Quarter: 2013Q4

REPORT INFORMATION
  Report Type: Spontaneous
  Country: BR (occurrence: BR)
  Receive Date: 20130812
  Receipt Date: 20131019
  Transmission Date: 20140711
  Serious: Yes (Hospitalization, Other)
  Sender: FDA-Public Use
  Company Number: BR-AMGEN-BRASP2013056132

PATIENT
  Age: 38 Year
  Sex: Female
  Weight: 73.7 kg

DRUGS (5)
  1. PROLIA [Suspect]
     Indication: OSTEOPOROSIS
     Dosage: 60 MG/ML, UNK
     Route: 042
     Dates: start: 20130719, end: 20130719
  2. FLUCONAZOL [Concomitant]
  3. IMIDAZOLE [Concomitant]
  4. CALCIUM [Concomitant]
  5. VITAMIN D [Concomitant]

REACTIONS (5)
  - Muscle spasms [Recovered/Resolved]
  - Paraesthesia [Recovered/Resolved]
  - Arrhythmia [Recovered/Resolved]
  - Constipation [Unknown]
  - Hypocalcaemia [Recovered/Resolved]
